FAERS Safety Report 9312030 (Version 2)
Quarter: 2014Q1

REPORT INFORMATION
  Report Type: Spontaneous
  Country: JP (occurrence: JP)
  Receive Date: 20130528
  Receipt Date: 20140109
  Transmission Date: 20141002
  Serious: Yes (Other)
  Sender: FDA-Public Use
  Company Number: JP-SANOFI-AVENTIS-2013SA052941

PATIENT
  Age: 66 Year
  Sex: Female

DRUGS (1)
  1. ONETAXOTERE [Suspect]
     Indication: OVARIAN CANCER
     Dosage: INTERVAL UNKNOWN
     Route: 042
     Dates: start: 20130515, end: 20130820

REACTIONS (1)
  - Gaze palsy [Recovered/Resolved]
